FAERS Safety Report 6000317-3 (Version None)
Quarter: 2008Q4

REPORT INFORMATION
  Report Type: 
  Country: None (occurrence: None)
  Receive Date: 20081215
  Receipt Date: 20081204
  Transmission Date: 20090506
  Serious: Yes (Other)
  Sender: FDA-Public Use
  Company Number: IT-ROCHE-587663

PATIENT
  Sex: Female

DRUGS (7)
  1. BONIVA [Suspect]
     Indication: OSTEOPOROSIS
     Route: 048
     Dates: start: 20061201, end: 20080701
  2. ASPIRIN [Concomitant]
     Route: 048
  3. CALCIUM-SANDOZ D3 [Concomitant]
     Dosage: STRENGTH REPORTED AS: 1000+880 IU
     Route: 048
  4. NORVASC [Concomitant]
     Route: 048
  5. KARVEZIDE [Concomitant]
     Dosage: STRENGTH REPORTED AS: 150+12.5 MG
     Route: 048
  6. SERETIDE [Concomitant]
     Dosage: STRENGTH: 25+50 MCG
     Route: 055
  7. RESPICUR [Concomitant]
     Route: 048

REACTIONS (1)
  - OSTEONECROSIS [None]
